FAERS Safety Report 17197234 (Version 2)
Quarter: 2020Q1

REPORT INFORMATION
  Report Type: Spontaneous
  Country: PL (occurrence: PL)
  Receive Date: 20191224
  Receipt Date: 20200103
  Transmission Date: 20200409
  Serious: Yes (Hospitalization)
  Sender: FDA-Public Use
  Company Number: PL-ASTRAZENECA-2019SF85440

PATIENT
  Age: 46 Year
  Sex: Male

DRUGS (3)
  1. ARIPIPRAZOLE. [Suspect]
     Active Substance: ARIPIPRAZOLE
     Route: 065
  2. QUETIAPINE. [Suspect]
     Active Substance: QUETIAPINE
     Route: 048
  3. LORAZEPAM. [Concomitant]
     Active Substance: LORAZEPAM

REACTIONS (5)
  - Agitation [Recovering/Resolving]
  - Aggression [Unknown]
  - Condition aggravated [Unknown]
  - Anxiety [Recovering/Resolving]
  - Feeling abnormal [Unknown]
